FAERS Safety Report 10228350 (Version 1)
Quarter: 2014Q2

REPORT INFORMATION
  Report Type: Spontaneous
  Country: US (occurrence: None)
  Receive Date: 20140505
  Receipt Date: 20140505
  Transmission Date: 20141212
  Serious: No
  Sender: FDA-Public Use
  Company Number: US-014681

PATIENT
  Age: 66 Year
  Sex: Male
  Weight: 152.41 kg

DRUGS (1)
  1. PICO-SALAX (NOT SPECIFIED) [Suspect]
     Dosage: FIRST PACK AT 1 PM AND SECOND DOSE AT 6PM
     Route: 048
     Dates: start: 20140206, end: 20140206

REACTIONS (1)
  - Drug ineffective [None]
